FAERS Safety Report 12308209 (Version 4)
Quarter: 2016Q2

REPORT INFORMATION
  Report Type: Report from Study
  Country: HR (occurrence: HR)
  Receive Date: 20160426
  Receipt Date: 20160617
  Transmission Date: 20160815
  Serious: Yes (Hospitalization, Other)
  Sender: FDA-Public Use
  Company Number: HR-ABBVIE-16P-216-1613365-00

PATIENT
  Sex: Female

DRUGS (3)
  1. IBUPROFEN. [Concomitant]
     Active Substance: IBUPROFEN
     Indication: PRODUCT USED FOR UNKNOWN INDICATION
     Dosage: OCCASIONALLY FOR MANY YEARS
  2. DUODOPA [Suspect]
     Active Substance: CARBIDOPA\LEVODOPA
     Indication: PARKINSON^S DISEASE
     Route: 050
  3. DUODOPA [Suspect]
     Active Substance: CARBIDOPA\LEVODOPA
     Route: 050

REACTIONS (6)
  - Gastric ulcer [Recovered/Resolved]
  - Procedural complication [Recovered/Resolved]
  - Pneumoperitoneum [Recovering/Resolving]
  - Stoma site discharge [Recovered/Resolved]
  - Abdominal pain [Recovering/Resolving]
  - Mucosal hyperaemia [Unknown]

NARRATIVE: CASE EVENT DATE: 20160609
